FAERS Safety Report 8578601-9 (Version None)
Quarter: 2012Q3

REPORT INFORMATION
  Report Type: 
  Country: None (occurrence: None)
  Receive Date: 20120730
  Receipt Date: 20120730
  Transmission Date: 20120928
  Serious: No
  Sender: FDA-Public Use
  Company Number: None

PATIENT
  Sex: Female
  Weight: 53.978 kg

DRUGS (2)
  1. ACETAMINOPHEN AND HYDROCODONE BITARTRATE [Suspect]
     Indication: PAIN MANAGEMENT
     Dosage: 1 TABLET FOUR TIMES DAILY PO
     Route: 048
     Dates: start: 20120723, end: 20120727
  2. ACETAMINOPHEN AND HYDROCODONE BITARTRATE [Suspect]
     Indication: SCOLIOSIS
     Dosage: 1 TABLET FOUR TIMES DAILY PO
     Route: 048
     Dates: start: 20120723, end: 20120727

REACTIONS (5)
  - DIPLOPIA [None]
  - PRODUCT QUALITY ISSUE [None]
  - ROAD TRAFFIC ACCIDENT [None]
  - PRODUCT SUBSTITUTION ISSUE [None]
  - ACTIVITIES OF DAILY LIVING IMPAIRED [None]
